FAERS Safety Report 7682384-4 (Version None)
Quarter: 2011Q3

REPORT INFORMATION
  Report Type: 
  Country: None (occurrence: None)
  Receive Date: 20110810
  Receipt Date: 20110713
  Transmission Date: 20111222
  Serious: Yes (Hospitalization, Other)
  Sender: FDA-Public Use
  Company Number: 2011002165

PATIENT
  Age: 76 Year
  Sex: Male

DRUGS (17)
  1. DIFFLAM (BENZYDAMINE HYDROCHLORIDE) [Concomitant]
  2. SORAFENIB (SORAFENIB) TABLET [Suspect]
     Indication: HEPATIC NEOPLASM MALIGNANT
     Dosage: 400 MG, BID, ORAL ; 400 MG, BID, ORAL ; 400 MG, UID/QD, ORAL ; 400 MG, UID/QD, ORAL
     Route: 048
     Dates: start: 20100311, end: 20100317
  3. SORAFENIB (SORAFENIB) TABLET [Suspect]
     Indication: HEPATIC NEOPLASM MALIGNANT
     Dosage: 400 MG, BID, ORAL ; 400 MG, BID, ORAL ; 400 MG, UID/QD, ORAL ; 400 MG, UID/QD, ORAL
     Route: 048
     Dates: start: 20101021, end: 20110428
  4. SORAFENIB (SORAFENIB) TABLET [Suspect]
     Indication: HEPATIC NEOPLASM MALIGNANT
     Dosage: 400 MG, BID, ORAL ; 400 MG, BID, ORAL ; 400 MG, UID/QD, ORAL ; 400 MG, UID/QD, ORAL
     Route: 048
     Dates: start: 20100708, end: 20101006
  5. SORAFENIB (SORAFENIB) TABLET [Suspect]
     Indication: HEPATIC NEOPLASM MALIGNANT
     Dosage: 400 MG, BID, ORAL ; 400 MG, BID, ORAL ; 400 MG, UID/QD, ORAL ; 400 MG, UID/QD, ORAL
     Route: 048
     Dates: start: 20100327, end: 20100623
  6. ERLOTINIB HYDROCHLORIDE [Suspect]
     Indication: HEPATIC NEOPLASM MALIGNANT
     Dosage: 150 MG, UID/QD, ORAL 100 MG, UID/QD, ORAL ; 100 MG, UID/QD, ORAL ;  100 MG, UID/QD, ORAL
     Route: 048
     Dates: start: 20100311, end: 20100317
  7. ERLOTINIB HYDROCHLORIDE [Suspect]
     Indication: HEPATIC NEOPLASM MALIGNANT
     Dosage: 150 MG, UID/QD, ORAL 100 MG, UID/QD, ORAL ; 100 MG, UID/QD, ORAL ;  100 MG, UID/QD, ORAL
     Route: 048
     Dates: start: 20100708, end: 20101006
  8. ERLOTINIB HYDROCHLORIDE [Suspect]
     Indication: HEPATIC NEOPLASM MALIGNANT
     Dosage: 150 MG, UID/QD, ORAL 100 MG, UID/QD, ORAL ; 100 MG, UID/QD, ORAL ;  100 MG, UID/QD, ORAL
     Route: 048
     Dates: start: 20100327, end: 20100623
  9. ERLOTINIB HYDROCHLORIDE [Suspect]
     Indication: HEPATIC NEOPLASM MALIGNANT
     Dosage: 150 MG, UID/QD, ORAL 100 MG, UID/QD, ORAL ; 100 MG, UID/QD, ORAL ;  100 MG, UID/QD, ORAL
     Route: 048
     Dates: start: 20101021, end: 20110428
  10. ASPIRIN [Concomitant]
  11. RAMIPRIL [Concomitant]
  12. CHLORHEXIDINE GLUCONATE [Concomitant]
  13. OMNIPAQUE 70 [Concomitant]
  14. LOPERAMIDE [Concomitant]
  15. CLARITHROMYCIN [Concomitant]
  16. SOLPADOL (CODEINE PHOSPHATE, PARACETAMOL) [Concomitant]
  17. AQUEOUS (EMULSIFYING WAX, PARAFFIN, LIQUID) [Concomitant]

REACTIONS (10)
  - MUSCULOSKELETAL PAIN [None]
  - COLD SWEAT [None]
  - LOWER RESPIRATORY TRACT INFECTION [None]
  - DIARRHOEA [None]
  - DEHYDRATION [None]
  - LETHARGY [None]
  - HYPERHIDROSIS [None]
  - LUNG DISORDER [None]
  - INFECTION [None]
  - TOXICITY TO VARIOUS AGENTS [None]
